FAERS Safety Report 6505533-X (Version None)
Quarter: 2009Q4

REPORT INFORMATION
  Report Type: 
  Country: None (occurrence: None)
  Receive Date: 20091218
  Receipt Date: 20091118
  Transmission Date: 20100525
  Serious: No
  Sender: FDA-Public Use
  Company Number: US-BAYER-200939860NA

PATIENT
  Age: 48 Year
  Sex: Female

DRUGS (2)
  1. CLIMARA [Suspect]
     Indication: HYSTERECTOMY
     Route: 062
     Dates: start: 20000101
  2. CLIMARA [Suspect]
     Route: 062
     Dates: start: 20091111, end: 20091114

REACTIONS (1)
  - APPLICATION SITE VESICLES [None]
